FAERS Safety Report 6961272-2 (Version None)
Quarter: 2010Q3

REPORT INFORMATION
  Report Type: 
  Country: None (occurrence: None)
  Receive Date: 20100901
  Receipt Date: 20100830
  Transmission Date: 20110219
  Serious: Yes (Other)
  Sender: FDA-Public Use
  Company Number: A0869729A

PATIENT
  Age: 59 Year
  Sex: Female

DRUGS (2)
  1. ADVAIR DISKUS 100/50 [Suspect]
     Dosage: 1PUFF PER DAY
     Route: 055
     Dates: start: 20060101
  2. ALLERGY MEDICATION [Concomitant]

REACTIONS (4)
  - DYSPNOEA [None]
  - ILL-DEFINED DISORDER [None]
  - OBSTRUCTIVE AIRWAYS DISORDER [None]
  - PRODUCT QUALITY ISSUE [None]
